FAERS Safety Report 5419834-X (Version None)
Quarter: 2007Q3

REPORT INFORMATION
  Report Type: 
  Country: None (occurrence: None)
  Receive Date: 20070718
  Receipt Date: 20060814
  Transmission Date: 20080115
  Serious: Yes (Other)
  Sender: FDA-Public Use
  Company Number: 2006100340

PATIENT
  Sex: Female

DRUGS (4)
  1. CELEBREX [Suspect]
     Indication: CARPAL TUNNEL SYNDROME
     Dosage: 200 MG (20 MG, 1 IN 1 D)
     Dates: start: 20060516
  2. CELEBREX [Suspect]
     Indication: MUSCULOSKELETAL PAIN
     Dosage: 200 MG (20 MG, 1 IN 1 D)
     Dates: start: 20060516
  3. SYNTHROID [Concomitant]
  4. MULTI-VITAMINS [Concomitant]

REACTIONS (2)
  - BLOOD PRESSURE INCREASED [None]
  - DIZZINESS [None]
